FAERS Safety Report 6976761-4 (Version None)
Quarter: 2010Q3

REPORT INFORMATION
  Report Type: 
  Country: None (occurrence: None)
  Receive Date: 20100910
  Receipt Date: 20100831
  Transmission Date: 20110219
  Serious: Yes (Other)
  Sender: FDA-Public Use
  Company Number: US-PFIZER INC-2010109920

PATIENT
  Sex: Male
  Weight: 63.492 kg

DRUGS (8)
  1. LYRICA [Suspect]
     Indication: COMPLEX REGIONAL PAIN SYNDROME
     Dosage: 50 MG, 2X/DAY
     Dates: start: 20100415
  2. LYRICA [Suspect]
     Dosage: 100 MG, 2X/DAY
  3. LYRICA [Suspect]
     Dosage: 150 MG, 2X/DAY
     Route: 048
     Dates: start: 20100415
  4. DILANTIN [Suspect]
     Indication: CONVULSION
     Dosage: UNK
     Route: 048
     Dates: start: 20100401, end: 20100415
  5. DILANTIN [Suspect]
     Indication: ABDOMINAL PAIN UPPER
  6. CARDIZEM [Concomitant]
     Dosage: UNK
     Route: 048
  7. NORVASC [Concomitant]
     Indication: CARDIAC DISORDER
     Dosage: 10 MG, 1X/DAY
     Route: 048
  8. SIMVASTATIN [Concomitant]
     Indication: BLOOD CHOLESTEROL INCREASED
     Dosage: 20 MG, 1X/DAY

REACTIONS (3)
  - OEDEMA PERIPHERAL [None]
  - RASH [None]
  - WEIGHT INCREASED [None]
